FAERS Safety Report 22952786 (Version 3)
Quarter: 2024Q1

REPORT INFORMATION
  Report Type: Report from Study
  Country: US (occurrence: US)
  Receive Date: 20230918
  Receipt Date: 20240103
  Transmission Date: 20240409
  Serious: Yes (Other)
  Sender: FDA-Public Use
  Company Number: US-ABBVIE-5367662

PATIENT
  Sex: Female

DRUGS (3)
  1. HUMIRA [Suspect]
     Active Substance: ADALIMUMAB
     Indication: Rheumatoid arthritis
     Dosage: LAST ADMIN DATE 2023, FORM STRENGTH 40MG
     Route: 058
     Dates: start: 20230405
  2. HUMIRA [Suspect]
     Active Substance: ADALIMUMAB
     Dosage: FIRST ADMIN DATE 2023, FORM STRENGTH 40MG
     Route: 058
  3. METHOTREXATE [Concomitant]
     Active Substance: METHOTREXATE
     Indication: Product used for unknown indication

REACTIONS (11)
  - Tooth extraction [Not Recovered/Not Resolved]
  - Exostosis [Not Recovered/Not Resolved]
  - Fall [Recovering/Resolving]
  - Joint range of motion decreased [Unknown]
  - Foot fracture [Unknown]
  - Gingival disorder [Recovering/Resolving]
  - Contusion [Unknown]
  - Constipation [Unknown]
  - Impaired healing [Unknown]
  - Shoulder fracture [Recovering/Resolving]
  - Arthropathy [Unknown]

NARRATIVE: CASE EVENT DATE: 20230101
